FAERS Safety Report 12249144 (Version 1)
Quarter: 2016Q2

REPORT INFORMATION
  Report Type: Spontaneous
  Country: HK (occurrence: HK)
  Receive Date: 20160408
  Receipt Date: 20160408
  Transmission Date: 20160815
  Serious: Yes (Other)
  Sender: FDA-Public Use
  Company Number: HK-MYLANLABS-2016M1014519

PATIENT

DRUGS (7)
  1. DOXORUBICIN [Suspect]
     Active Substance: DOXORUBICIN
     Indication: PANCREATITIS NECROTISING
     Dosage: PELLETS OF 1 MM DIAMETER MIXED WITH 40 MG OF GENTAMICIN
     Route: 013
  2. AKTIL                              /00852501/ [Concomitant]
     Active Substance: AMOXICILLIN\CLAVULANIC ACID
     Indication: PANCREATITIS NECROTISING
     Dosage: 1.2MG
     Route: 042
  3. DOXORUBICIN [Suspect]
     Active Substance: DOXORUBICIN
     Indication: HEPATOCELLULAR CARCINOMA
  4. AKTIL                              /00852501/ [Concomitant]
     Active Substance: AMOXICILLIN\CLAVULANIC ACID
     Route: 048
  5. PANTOPRAZOLE [Concomitant]
     Active Substance: PANTOPRAZOLE SODIUM
     Dosage: 40 MG PER DAY
     Route: 048
  6. PANTOPRAZOLE [Concomitant]
     Active Substance: PANTOPRAZOLE SODIUM
     Indication: PANCREATITIS NECROTISING
     Dosage: 40 MG
     Route: 042
  7. GENTAMICIN. [Concomitant]
     Active Substance: GENTAMICIN
     Indication: PANCREATITIS NECROTISING
     Dosage: 40 MG; PELLETS OF 1 MM DIAMETER SMALL GELATIN-SPONGE MIXED WITH 40 MG OF GENTAMICIN
     Route: 065

REACTIONS (1)
  - Pancreatitis acute [Unknown]
